FAERS Safety Report 6343673-9 (Version None)
Quarter: 2009Q3

REPORT INFORMATION
  Report Type: 
  Country: None (occurrence: None)
  Receive Date: 20090903
  Receipt Date: 20090903
  Transmission Date: 20100115
  Serious: No
  Sender: FDA-Public Use
  Company Number: None

PATIENT
  Age: 66 Year
  Sex: Female

DRUGS (2)
  1. VERAPAMIL [Suspect]
     Indication: ATRIAL FIBRILLATION
     Dosage: 30 TABS - 180MG 1 TAB -24 HRS ORAL (USED 6 )
     Route: 048
     Dates: start: 20090701
  2. VERAPAMIL [Suspect]
     Indication: ATRIAL FIBRILLATION
     Dosage: 30 TABS- 120 MG 1/2 TAB - 8 HRS ORAL (USED 4X 1/2 TAB/
     Route: 048
     Dates: start: 20090801

REACTIONS (3)
  - CARDIAC ARREST [None]
  - PRODUCT SUBSTITUTION ISSUE [None]
  - UNEVALUABLE EVENT [None]
